FAERS Safety Report 6119369 (Version 14)
Quarter: 2013Q3

REPORT INFORMATION
  Report Type: Spontaneous
  Country: US (occurrence: US)
  Receive Date: 20060831
  Receipt Date: 20130808
  Transmission Date: 20140515
  Serious: Yes (Hospitalization, Other)
  Sender: FDA-Public Use
  Company Number: PHEH2006US10891

PATIENT
  Age: 51 Year
  Sex: Female
  Weight: 88 kg

DRUGS (40)
  1. AREDIA [Suspect]
     Indication: METASTASES TO BONE
     Dosage: 90 MG, QW4
     Route: 042
     Dates: start: 200104, end: 200111
  2. ZOMETA [Suspect]
     Indication: METASTASES TO BONE
     Dosage: 4 MG, QMO
     Route: 042
     Dates: start: 20020423, end: 20050128
  3. FEMARA [Concomitant]
     Dosage: 2.5 MG, UNK
     Dates: start: 2000, end: 200604
  4. OXYCONTIN [Concomitant]
  5. LORAZEPAM [Concomitant]
  6. PERCOCET [Concomitant]
  7. ADVAIR [Concomitant]
  8. CLINDAMYCIN [Concomitant]
  9. FLONASE [Concomitant]
  10. NEXIUM [Concomitant]
  11. CHEMOTHERAPEUTICS NOS [Concomitant]
  12. RADIATION [Concomitant]
     Dates: start: 2001
  13. COMBIVENT                               /GFR/ [Concomitant]
  14. COUMADIN ^BOOTS^ [Concomitant]
  15. VIOXX [Concomitant]
     Dosage: 50 MG, UNK
  16. EFFEXOR [Concomitant]
     Dosage: 25 MG, UNK
  17. XELODA [Concomitant]
  18. VALTREX [Concomitant]
  19. GEMZAR [Concomitant]
  20. KADIAN ^KNOLL^ [Concomitant]
  21. PERIDEX [Concomitant]
  22. MEGACE [Concomitant]
  23. ACTIVASE [Concomitant]
  24. HEPARIN [Concomitant]
  25. CELEBREX [Concomitant]
  26. NEUPOGEN [Concomitant]
  27. DECADRON                                /CAN/ [Concomitant]
  28. ZOFRAN [Concomitant]
  29. TAXOTERE [Concomitant]
  30. EPIRUBICIN [Concomitant]
  31. FLUCONAZOLE [Concomitant]
  32. REGLAN [Concomitant]
  33. VANCOMYCIN [Concomitant]
  34. METOCLOPRAMIDE [Concomitant]
  35. VALACICLOVIR [Concomitant]
  36. ZOLPIDEM [Concomitant]
  37. ALBUTEROL [Concomitant]
  38. LUNESTA [Concomitant]
  39. ALDACTONE [Concomitant]
  40. LYRICA [Concomitant]

REACTIONS (107)
  - Pneumonia [Unknown]
  - Breast cancer recurrent [Unknown]
  - Osteonecrosis of jaw [Unknown]
  - General physical health deterioration [Unknown]
  - Pain [Unknown]
  - Anxiety [Unknown]
  - Decreased interest [Unknown]
  - Tooth disorder [Unknown]
  - Impaired healing [Unknown]
  - Joint stiffness [Unknown]
  - Fistula discharge [Unknown]
  - Mastication disorder [Unknown]
  - Pain in jaw [Unknown]
  - Jaw fracture [Unknown]
  - Metastases to mouth [Unknown]
  - Neoplasm progression [Unknown]
  - Malignant neoplasm progression [Unknown]
  - Metastases to liver [Unknown]
  - Deformity [Unknown]
  - Bone erosion [Unknown]
  - Osteoarthritis [Unknown]
  - Tooth loss [Unknown]
  - Acute sinusitis [Unknown]
  - Pathological fracture [Unknown]
  - Osteomyelitis [Unknown]
  - Bone disorder [Unknown]
  - Primary sequestrum [Unknown]
  - Neuritis [Unknown]
  - Tooth fracture [Unknown]
  - Serum ferritin increased [Unknown]
  - Wound dehiscence [Unknown]
  - Skin lesion [Unknown]
  - Cardiac failure congestive [Unknown]
  - Nutritional condition abnormal [Unknown]
  - Thrombocytopenia [Unknown]
  - Osteodystrophy [Unknown]
  - Oedema peripheral [Unknown]
  - Failure to thrive [Unknown]
  - Dysphagia [Unknown]
  - Pain in extremity [Unknown]
  - Hot flush [Unknown]
  - Arthralgia [Unknown]
  - Constipation [Unknown]
  - Nasal congestion [Unknown]
  - Osteoporosis [Unknown]
  - Fatigue [Unknown]
  - Musculoskeletal pain [Unknown]
  - Spinal osteoarthritis [Unknown]
  - Lumbar spinal stenosis [Unknown]
  - Iritis [Unknown]
  - Rib fracture [Unknown]
  - Gait disturbance [Unknown]
  - Clostridium difficile infection [Unknown]
  - Oral herpes [Unknown]
  - Asthenia [Unknown]
  - Malnutrition [Unknown]
  - Hyponatraemia [Unknown]
  - Hypokalaemia [Unknown]
  - Hypoalbuminaemia [Unknown]
  - Hypochloraemia [Unknown]
  - Hypocalcaemia [Unknown]
  - Purulent discharge [Unknown]
  - Confusional state [Unknown]
  - Hallucination [Unknown]
  - Headache [Unknown]
  - Insomnia [Unknown]
  - Weight decreased [Unknown]
  - Hypotension [Unknown]
  - Lethargy [Unknown]
  - Atelectasis [Unknown]
  - Gingivitis [Unknown]
  - Mental status changes [Unknown]
  - Sepsis [Unknown]
  - Cataract [Unknown]
  - Leukocytosis [Unknown]
  - Lung infiltration [Unknown]
  - Anaemia macrocytic [Unknown]
  - Decubitus ulcer [Unknown]
  - Urinary tract infection [Unknown]
  - Sinus tachycardia [Unknown]
  - Blood urea nitrogen/creatinine ratio increased [Unknown]
  - Colitis [Unknown]
  - Abdominal pain [Unknown]
  - Pseudomembranous colitis [Unknown]
  - Diabetes mellitus [Unknown]
  - Fall [Unknown]
  - Joint injury [Unknown]
  - Urinary incontinence [Unknown]
  - Dyspnoea [Unknown]
  - Stress fracture [Unknown]
  - Femoral neck fracture [Unknown]
  - Chronic obstructive pulmonary disease [Unknown]
  - Hypoxia [Unknown]
  - Muscle disorder [Unknown]
  - Depressed level of consciousness [Unknown]
  - Cholelithiasis [Unknown]
  - Ascites [Unknown]
  - Intercostal neuralgia [Unknown]
  - Amnesia [Unknown]
  - Osteolysis [Unknown]
  - Neuropathy peripheral [Unknown]
  - Osteitis [Unknown]
  - Bone swelling [Unknown]
  - Cough [Unknown]
  - Arthropathy [Unknown]
  - Chondropathy [Unknown]
  - Brain cancer metastatic [Unknown]
